FAERS Safety Report 4928924-7 (Version None)
Quarter: 2006Q1

REPORT INFORMATION
  Report Type: 
  Country: None (occurrence: None)
  Receive Date: 20060301
  Receipt Date: 20060217
  Transmission Date: 20060701
  Serious: Yes (Hospitalization)
  Sender: FDA-Public Use
  Company Number: FR-JNJFOC-20060206262

PATIENT
  Age: 73 Year
  Sex: Female

DRUGS (2)
  1. TOPALGIC [Suspect]
     Indication: BACK PAIN
     Route: 048
  2. SEVREDOL [Suspect]
     Indication: BACK PAIN
     Route: 048

REACTIONS (3)
  - INTESTINAL OBSTRUCTION [None]
  - URINARY RETENTION [None]
  - VOMITING [None]
